FAERS Safety Report 23526998 (Version 1)
Quarter: 2024Q1

REPORT INFORMATION
  Report Type: Spontaneous
  Country: FI (occurrence: FI)
  Receive Date: 20240215
  Receipt Date: 20240215
  Transmission Date: 20240410
  Serious: Yes (Other)
  Sender: FDA-Public Use
  Company Number: FI-PFIZER INC-PV202400020593

PATIENT
  Age: 49 Year
  Sex: Male

DRUGS (1)
  1. FRAGMIN [Suspect]
     Active Substance: DALTEPARIN SODIUM
     Indication: Thrombosis prophylaxis
     Dosage: 2500 IU, SINGLE-DOSE
     Route: 058

REACTIONS (3)
  - Off label use [Recovered/Resolved]
  - Portal vein thrombosis [Recovered/Resolved]
  - Mesenteric vein thrombosis [Recovered/Resolved]
